FAERS Safety Report 5680582-2 (Version None)
Quarter: 2008Q1

REPORT INFORMATION
  Report Type: 
  Country: None (occurrence: None)
  Receive Date: 20080326
  Receipt Date: 20080314
  Transmission Date: 20080703
  Serious: Yes (Congenital Anomaly)
  Sender: FDA-Public Use
  Company Number: CH-WYE-G01252208

PATIENT
  Sex: Male

DRUGS (1)
  1. EFFEXOR [Suspect]
     Route: 064
     Dates: end: 20071001

REACTIONS (2)
  - CONGENITAL MUSCULOSKELETAL ANOMALY [None]
  - DRUG EXPOSURE DURING PREGNANCY [None]
